FAERS Safety Report 5802667-X (Version None)
Quarter: 2008Q3

REPORT INFORMATION
  Report Type: 
  Country: None (occurrence: None)
  Receive Date: 20080708
  Receipt Date: 20080630
  Transmission Date: 20090109
  Serious: Yes (Other)
  Sender: FDA-Public Use
  Company Number: US-BAYER-200826946NA

PATIENT
  Age: 63 Year
  Sex: Female
  Weight: 70 kg

DRUGS (3)
  1. MAGNEVIST [Suspect]
     Indication: ARTERIOGRAM CAROTID
     Dosage: TOTAL DAILY DOSE: 13 ML  UNIT DOSE: 100 ML
     Route: 042
     Dates: start: 20080617, end: 20080617
  2. PROPRANOLOL [Concomitant]
  3. HYDROCHLOROTHIAZIDE [Concomitant]

REACTIONS (4)
  - EYE PRURITUS [None]
  - FLUSHING [None]
  - PHARYNGEAL OEDEMA [None]
  - URTICARIA [None]
